FAERS Safety Report 9892190 (Version 3)
Quarter: 2014Q2

REPORT INFORMATION
  Report Type: Spontaneous
  Country: US (occurrence: US)
  Receive Date: 20140212
  Receipt Date: 20140616
  Transmission Date: 20141212
  Serious: Yes (Hospitalization, Other)
  Sender: FDA-Public Use
  Company Number: US-GILEAD-2014-0094211

PATIENT
  Age: 73 Year
  Sex: Male

DRUGS (19)
  1. RANEXA [Suspect]
     Indication: ANGINA PECTORIS
     Dosage: 500 MG, BID
     Route: 048
  2. RANEXA [Suspect]
     Indication: CORONARY ARTERY DISEASE
     Dosage: 1000 MG, UNK
     Route: 048
     Dates: end: 20140209
  3. LEVOTHYROXINE [Concomitant]
  4. PROTONIX [Concomitant]
  5. MIDODRINE [Concomitant]
  6. VITAMIN D NOS [Concomitant]
  7. LIPITOR [Concomitant]
  8. MULTIVITAMIN                       /07504101/ [Concomitant]
  9. COMPAZINE                          /00013302/ [Concomitant]
  10. ALBUTEROL                          /00139501/ [Concomitant]
  11. NITRO                              /00003201/ [Concomitant]
  12. EPOGEN [Concomitant]
  13. COUMADIN                           /00014802/ [Concomitant]
  14. NEURONTIN [Concomitant]
  15. OXYCODONE [Concomitant]
  16. COLACE [Concomitant]
  17. CALCIUM [Concomitant]
  18. FENOFIBRATE [Concomitant]
  19. AMIODARONE [Concomitant]

REACTIONS (5)
  - Mental status changes [Recovering/Resolving]
  - Dyskinesia [Recovering/Resolving]
  - Hallucination [Recovering/Resolving]
  - Tremor [Recovering/Resolving]
  - Asthenia [Recovering/Resolving]
